FAERS Safety Report 11588577 (Version 2)
Quarter: 2015Q4

REPORT INFORMATION
  Report Type: Spontaneous
  Country: JP (occurrence: JP)
  Receive Date: 20151002
  Receipt Date: 20151118
  Transmission Date: 20160304
  Serious: Yes (Death, Hospitalization)
  Sender: FDA-Public Use
  Company Number: PHJP2015JP012261

PATIENT
  Age: 60 Year
  Sex: Male
  Weight: 72 kg

DRUGS (9)
  1. GLIVEC [Suspect]
     Active Substance: IMATINIB MESYLATE
     Indication: GASTROINTESTINAL STROMAL TUMOUR
     Dosage: 400 MG, QD
     Route: 048
     Dates: start: 20071003
  2. GLIVEC [Suspect]
     Active Substance: IMATINIB MESYLATE
     Dosage: 400 MG, QD
     Route: 048
     Dates: start: 20131212, end: 20140127
  3. MIYA-BM [Concomitant]
     Active Substance: CLOSTRIDIUM BUTYRICUM SPORES STRAIN M-55
     Indication: PRODUCT USED FOR UNKNOWN INDICATION
     Dosage: UNK
     Route: 065
  4. SUTENT [Concomitant]
     Active Substance: SUNITINIB MALATE
     Dosage: 37.5 MG, UNK
     Route: 065
     Dates: start: 20120210
  5. BLOPRESS [Concomitant]
     Active Substance: CANDESARTAN CILEXETIL
     Indication: PRODUCT USED FOR UNKNOWN INDICATION
     Dosage: 8 MG, UNK
     Route: 048
  6. LOXONIN [Concomitant]
     Active Substance: LOXOPROFEN SODIUM
     Indication: PRODUCT USED FOR UNKNOWN INDICATION
     Dosage: 60 MG, UNK
     Route: 048
  7. SUTENT [Concomitant]
     Active Substance: SUNITINIB MALATE
     Indication: PRODUCT USED FOR UNKNOWN INDICATION
     Dosage: 50 MG, UNK
     Route: 065
     Dates: start: 20120112
  8. REGORAFENIB [Concomitant]
     Active Substance: REGORAFENIB
     Indication: PRODUCT USED FOR UNKNOWN INDICATION
     Route: 065
     Dates: end: 201309
  9. TAKEPRON [Concomitant]
     Active Substance: LANSOPRAZOLE
     Indication: PRODUCT USED FOR UNKNOWN INDICATION
     Dosage: 15 MG, UNK
     Route: 048

REACTIONS (11)
  - Urine output decreased [Fatal]
  - Loss of consciousness [Fatal]
  - Haemothorax [Fatal]
  - Retroperitoneal haematoma [Fatal]
  - Anaemia [Fatal]
  - Gastrointestinal stromal tumour [Fatal]
  - Pain [Fatal]
  - Malignant neoplasm progression [Fatal]
  - Tumour haemorrhage [Fatal]
  - Disseminated intravascular coagulation [Fatal]
  - Haematoma [Fatal]

NARRATIVE: CASE EVENT DATE: 20140127
